FAERS Safety Report 7137166-9 (Version None)
Quarter: 2010Q4

REPORT INFORMATION
  Report Type: 
  Country: None (occurrence: None)
  Receive Date: 20101206
  Receipt Date: 20091213
  Transmission Date: 20110411
  Serious: Yes (Death)
  Sender: FDA-Public Use
  Company Number: US-ACTELION-A-US2006-14367

PATIENT

DRUGS (6)
  1. ILOPROST INHALATION SOLUTION 2.5UG US [Suspect]
     Indication: PULMONARY ARTERIAL HYPERTENSION
     Dosage: 2.5 UG, 6 X DAY
     Route: 055
     Dates: start: 20061218
  2. ILOPROST INHALATION SOLUTION 2.5UG US [Suspect]
     Dosage: 5 UG, 6-9 X DAY
     Route: 055
     Dates: start: 20061110, end: 20061217
  3. OXYGEN [Concomitant]
  4. LASIX [Concomitant]
  5. NIFEDIPINE [Concomitant]
  6. SILDENAFIL [Concomitant]
     Indication: PULMONARY HYPERTENSION

REACTIONS (6)
  - ARTHRALGIA [None]
  - CHEST DISCOMFORT [None]
  - DEATH [None]
  - DIZZINESS [None]
  - NAUSEA [None]
  - THROAT IRRITATION [None]
